FAERS Safety Report 5962603-2 (Version None)
Quarter: 2008Q4

REPORT INFORMATION
  Report Type: 
  Country: None (occurrence: None)
  Receive Date: 20081121
  Receipt Date: 20081113
  Transmission Date: 20090506
  Serious: Yes (Other)
  Sender: FDA-Public Use
  Company Number: US-PFIZER INC-2008096696

PATIENT
  Sex: Female
  Weight: 72.727 kg

DRUGS (21)
  1. CHANTIX [Suspect]
     Indication: EX-TOBACCO USER
     Dates: start: 20080101, end: 20081101
  2. GUAIFENESIN [Concomitant]
  3. LASIX [Concomitant]
  4. GABAPENTIN [Concomitant]
  5. IBUPROFEN TABLETS [Concomitant]
  6. INSULIN [Concomitant]
  7. MORPHINE [Concomitant]
  8. MORPHINE SULFATE [Concomitant]
  9. LORAZEPAM [Concomitant]
  10. DOCUSATE [Concomitant]
  11. LEVOTHYROXINE SODIUM [Concomitant]
  12. NORTRIPTYLINE HCL [Concomitant]
  13. POTASSIUM CHLORIDE [Concomitant]
  14. PREDNISONE TAB [Concomitant]
  15. ALBUTEROL [Concomitant]
     Route: 055
  16. SENNA [Concomitant]
  17. CALCIUM [Concomitant]
  18. DILTIAZEM HCL [Concomitant]
  19. NEXIUM [Concomitant]
  20. IPRATROPIUM BROMIDE [Concomitant]
  21. EFFEXOR [Concomitant]

REACTIONS (4)
  - ANXIETY [None]
  - DEPRESSION [None]
  - HERPES ZOSTER [None]
  - PARANOIA [None]
